FAERS Safety Report 7379974-5 (Version None)
Quarter: 2011Q1

REPORT INFORMATION
  Report Type: 
  Country: None (occurrence: None)
  Receive Date: 20110329
  Receipt Date: 20110324
  Transmission Date: 20110831
  Serious: Yes (Death)
  Sender: FDA-Public Use
  Company Number: PHHY2011CA19822

PATIENT
  Sex: Male

DRUGS (2)
  1. ACLASTA [Suspect]
     Indication: OSTEOPOROSIS
     Dates: start: 20090601
  2. ACLASTA [Suspect]
     Dosage: UNK
     Dates: start: 20100607

REACTIONS (1)
  - PNEUMONIA [None]
